FAERS Safety Report 5053865-7 (Version None)
Quarter: 2006Q3

REPORT INFORMATION
  Report Type: 
  Country: None (occurrence: None)
  Receive Date: 20060712
  Receipt Date: 20060623
  Transmission Date: 20061208
  Serious: Yes (Hospitalization)
  Sender: FDA-Public Use
  Company Number: AU200606000916

PATIENT
  Sex: Male

DRUGS (1)
  1. FLUOXETINE [Suspect]
     Indication: POST-TRAUMATIC STRESS DISORDER
     Dosage: 30 MG, DAILY (1/D)
     Dates: end: 20060603

REACTIONS (7)
  - ALPHA-1 ANTI-TRYPSIN INCREASED [None]
  - BLOOD GLUCOSE INCREASED [None]
  - BLOOD TRIGLYCERIDES INCREASED [None]
  - CARBOHYDRATE ANTIGEN 15-3 INCREASED [None]
  - CARBOHYDRATE ANTIGEN 19-9 INCREASED [None]
  - CHOLELITHIASIS [None]
  - LIPASE INCREASED [None]
